FAERS Safety Report 14474171 (Version 1)
Quarter: 2018Q1

REPORT INFORMATION
  Report Type: Spontaneous
  Country: GB (occurrence: GB)
  Receive Date: 20180201
  Receipt Date: 20180201
  Transmission Date: 20180509
  Serious: Yes (Other)
  Sender: FDA-Public Use
  Company Number: GB-LINDE-GB-LHC-2018029

PATIENT
  Age: 8 Year
  Sex: Male

DRUGS (1)
  1. NITROUS OXIDE (GENERIC) [Suspect]
     Active Substance: NITROUS OXIDE
     Indication: ANAESTHESIA

REACTIONS (2)
  - Abnormal behaviour [Recovered/Resolved]
  - Movement disorder [Recovered/Resolved]
